FAERS Safety Report 5747721-6 (Version None)
Quarter: 2008Q2

REPORT INFORMATION
  Report Type: 
  Country: None (occurrence: None)
  Receive Date: 20080523
  Receipt Date: 20080516
  Transmission Date: 20081010
  Serious: Yes (Other)
  Sender: FDA-Public Use
  Company Number: GB-ASTRAZENECA-2008GB00881

PATIENT
  Age: 15 Year
  Sex: Female
  Weight: 47 kg

DRUGS (9)
  1. OMEPRAZOLE [Suspect]
     Indication: HAEMORRHAGE
     Route: 048
     Dates: start: 20060601
  2. ZITHROMAX [Interacting]
     Indication: ANTIBIOTIC PROPHYLAXIS
     Route: 048
     Dates: start: 20040101
  3. ZITHROMAX [Interacting]
     Indication: CYSTIC FIBROSIS
     Route: 048
     Dates: start: 20040101
  4. COLOMYCIN [Concomitant]
     Route: 055
  5. CREON [Concomitant]
     Dosage: 36DF
     Route: 048
  6. PULMOZYME [Concomitant]
     Route: 055
  7. MULTIVITAMIN PREPARATION [Concomitant]
     Route: 048
  8. SERETIDE [Concomitant]
     Route: 055
  9. VENTOLIN [Concomitant]
     Route: 055

REACTIONS (3)
  - DRUG INTERACTION [None]
  - HYPOGLYCAEMIA [None]
  - TREMOR [None]
